FAERS Safety Report 10143832 (Version 2)
Quarter: 2014Q2

REPORT INFORMATION
  Report Type: Spontaneous
  Country: US (occurrence: US)
  Receive Date: 20140430
  Receipt Date: 20140523
  Transmission Date: 20141212
  Serious: No
  Sender: FDA-Public Use
  Company Number: US-GILEAD-2014-0101172

PATIENT
  Sex: Male

DRUGS (1)
  1. LETAIRIS [Suspect]
     Indication: PRODUCT USED FOR UNKNOWN INDICATION
     Dosage: 10 MG, QD
     Route: 065
     Dates: start: 20140303

REACTIONS (5)
  - Sleep disorder [Recovered/Resolved]
  - Unevaluable event [Recovered/Resolved]
  - Malaise [Unknown]
  - Dyspnoea [Unknown]
  - Chapped lips [Unknown]
